FAERS Safety Report 5000710-1 (Version None)
Quarter: 2006Q2

REPORT INFORMATION
  Report Type: 
  Country: None (occurrence: None)
  Receive Date: 20060512
  Receipt Date: 20060501
  Transmission Date: 20061013
  Serious: Yes (Hospitalization)
  Sender: FDA-Public Use
  Company Number: US-AMGEN-US178160

PATIENT
  Sex: Female

DRUGS (2)
  1. NEULASTA [Suspect]
     Indication: NEUTROPENIA
     Route: 065
     Dates: start: 20060426, end: 20060426
  2. ARANESP [Concomitant]
     Indication: MYELODYSPLASTIC SYNDROME
     Dates: start: 20050101

REACTIONS (8)
  - ASTHENIA [None]
  - BONE PAIN [None]
  - CHEST PAIN [None]
  - DIZZINESS [None]
  - DYSPNOEA [None]
  - HEART RATE INCREASED [None]
  - MYALGIA [None]
  - SHOULDER PAIN [None]
